FAERS Safety Report 23404103 (Version 1)
Quarter: 2024Q1

REPORT INFORMATION
  Report Type: Spontaneous
  Country: US (occurrence: None)
  Receive Date: 20240116
  Receipt Date: 20240116
  Transmission Date: 20240410
  Serious: No
  Sender: FDA-Public Use
  Company Number: 2024A010314

PATIENT
  Age: 64 Year
  Sex: Female

DRUGS (1)
  1. SEROQUEL [Suspect]
     Active Substance: QUETIAPINE FUMARATE
     Route: 048

REACTIONS (7)
  - Agitation [Unknown]
  - Depression [Unknown]
  - Memory impairment [Unknown]
  - Heart rate irregular [Unknown]
  - Bladder dysfunction [Unknown]
  - Thirst [Unknown]
  - Tardive dyskinesia [Unknown]
